FAERS Safety Report 6098939-7 (Version None)
Quarter: 2009Q1

REPORT INFORMATION
  Report Type: 
  Country: None (occurrence: None)
  Receive Date: 20090302
  Receipt Date: 20090225
  Transmission Date: 20090719
  Serious: Yes (Other)
  Sender: FDA-Public Use
  Company Number: DE-MERCK-0902DEU00193

PATIENT
  Age: 50 Year
  Sex: Male
  Weight: 89 kg

DRUGS (2)
  1. INVANZ [Suspect]
     Indication: INFECTION
     Route: 042
     Dates: start: 20090203, end: 20090203
  2. INVANZ [Suspect]
     Indication: SOFT TISSUE INFECTION
     Route: 042
     Dates: start: 20090203, end: 20090203

REACTIONS (2)
  - EYELID OEDEMA [None]
  - FLUSHING [None]
